FAERS Safety Report 7805250-X (Version None)
Quarter: 2011Q4

REPORT INFORMATION
  Report Type: 
  Country: None (occurrence: None)
  Receive Date: 20111010
  Receipt Date: 20110930
  Transmission Date: 20120403
  Serious: Yes (Other)
  Sender: FDA-Public Use
  Company Number: US-ASTRAZENECA-2010SE54893

PATIENT
  Age: 85 Year
  Sex: Female

DRUGS (2)
  1. TOPROL-XL [Suspect]
     Dosage: TWO TIMES A DAY, 100 MG EVERY MORNING, 75MG AT NIGHT
     Route: 048
  2. NEURONTIN [Concomitant]

REACTIONS (8)
  - PALPITATIONS [None]
  - CONFUSIONAL STATE [None]
  - DRUG DOSE OMISSION [None]
  - WEIGHT DECREASED [None]
  - PAIN [None]
  - GAIT DISTURBANCE [None]
  - DRUG EFFECT DECREASED [None]
  - RENAL FAILURE CHRONIC [None]
